FAERS Safety Report 24224254 (Version 2)
Quarter: 2024Q3

REPORT INFORMATION
  Report Type: Spontaneous
  Country: PL (occurrence: PL)
  Receive Date: 20240819
  Receipt Date: 20240920
  Transmission Date: 20241017
  Serious: Yes (Other)
  Sender: BAXTER
  Company Number: PL-BAXTER-2024BAX022999

PATIENT
  Age: 63 Year
  Sex: Female

DRUGS (1)
  1. PROPOFOL [Suspect]
     Active Substance: PROPOFOL
     Indication: Sedative therapy
     Dosage: 0.01 G/ML, UNSPECIFIED FREQUENCY,  HIGHER DOSES THAN STANDARD
     Route: 042
     Dates: start: 20240808, end: 20240808

REACTIONS (8)
  - Hypersensitivity [Recovered/Resolved]
  - Laryngospasm [Recovered/Resolved]
  - Salivary hypersecretion [Recovered/Resolved]
  - Myoclonus [Unknown]
  - Stridor [Recovered/Resolved]
  - Oxygen saturation decreased [Recovered/Resolved]
  - Sneezing [Recovered/Resolved]
  - Drug ineffective [Recovered/Resolved]

NARRATIVE: CASE EVENT DATE: 20240808
